FAERS Safety Report 24873689 (Version 1)
Quarter: 2025Q1

REPORT INFORMATION
  Report Type: Spontaneous
  Country: GB (occurrence: GB)
  Receive Date: 20250122
  Receipt Date: 20250122
  Transmission Date: 20250409
  Serious: Yes (Other)
  Sender: TEVA
  Company Number: None

PATIENT
  Age: 83 Year
  Sex: Female

DRUGS (2)
  1. TRIMETHOPRIM [Suspect]
     Active Substance: TRIMETHOPRIM
     Indication: Urinary tract infection
     Dosage: DAILY DOSE: 400 MG DAILY, DURATION: 8 DAYS
     Route: 065
     Dates: start: 20241206, end: 20241213
  2. FEZOLINETANT [Suspect]
     Active Substance: FEZOLINETANT
     Indication: Hot flush
     Dosage: DAILY DOSE: 45MG DAILY
     Route: 065

REACTIONS (1)
  - Drug interaction [Recovered/Resolved]
